FAERS Safety Report 13633688 (Version 1)
Quarter: 2017Q2

REPORT INFORMATION
  Report Type: Spontaneous
  Country: US (occurrence: US)
  Receive Date: 20170531
  Receipt Date: 20170531
  Transmission Date: 20170830
  Serious: No
  Sender: FDA-Public Use
  Company Number: US-ASTELLAS-1571536

PATIENT
  Sex: Male

DRUGS (4)
  1. TARCEVA [Suspect]
     Active Substance: ERLOTINIB HYDROCHLORIDE
     Route: 048
     Dates: start: 20150414
  2. TARCEVA [Suspect]
     Active Substance: ERLOTINIB HYDROCHLORIDE
     Route: 048
     Dates: start: 20160205
  3. TARCEVA [Suspect]
     Active Substance: ERLOTINIB HYDROCHLORIDE
     Indication: LUNG NEOPLASM MALIGNANT
     Route: 048
     Dates: start: 20150411
  4. TARCEVA [Suspect]
     Active Substance: ERLOTINIB HYDROCHLORIDE
     Route: 048
     Dates: start: 20151008

REACTIONS (13)
  - Constipation [Unknown]
  - Rash pruritic [Unknown]
  - Rash pustular [Unknown]
  - Paraesthesia [Unknown]
  - Dry skin [Unknown]
  - Flatulence [Unknown]
  - Dermatitis acneiform [Unknown]
  - Rash [Unknown]
  - Rash erythematous [Unknown]
  - Asthenia [Unknown]
  - Acne [Unknown]
  - Rash generalised [Unknown]
  - Haemorrhoids [Unknown]
